FAERS Safety Report 24194769 (Version 1)
Quarter: 2024Q3

REPORT INFORMATION
  Report Type: Spontaneous
  Country: AT (occurrence: AT)
  Receive Date: 20240809
  Receipt Date: 20240809
  Transmission Date: 20241016
  Serious: Yes (Hospitalization)
  Sender: PFIZER
  Company Number: None

PATIENT
  Age: 26 Year
  Sex: Female

DRUGS (1)
  1. UNASYN [Suspect]
     Active Substance: AMPICILLIN SODIUM\SULBACTAM SODIUM
     Indication: Dengue fever
     Dosage: UNK
     Route: 042
     Dates: start: 20240129

REACTIONS (8)
  - Pruritus [Recovered/Resolved]
  - Swelling face [Recovered/Resolved]
  - Sensation of foreign body [Recovered/Resolved]
  - Dermatitis exfoliative generalised [Recovered/Resolved]
  - Dizziness [Recovered/Resolved]
  - Type I hypersensitivity [Recovered/Resolved]
  - Skin test positive [Unknown]
  - Off label use [Unknown]

NARRATIVE: CASE EVENT DATE: 20240129
